FAERS Safety Report 5403038-0 (Version None)
Quarter: 2007Q3

REPORT INFORMATION
  Report Type: 
  Country: None (occurrence: None)
  Receive Date: 20070713
  Receipt Date: 20070410
  Transmission Date: 20080115
  Serious: Yes (Other)
  Sender: FDA-Public Use
  Company Number: 492261

PATIENT
  Age: 59 Year
  Sex: Female

DRUGS (5)
  1. BONIVA [Suspect]
     Indication: OSTEOPOROSIS POSTMENOPAUSAL
     Dosage: 150 MG ORAL
     Route: 048
     Dates: start: 20060815, end: 20070215
  2. ZANTAC [Suspect]
  3. XANAX [Concomitant]
  4. TUMS (CALCIUM CARBONATE) [Concomitant]
  5. PROTONIX [Concomitant]

REACTIONS (2)
  - GASTRIC ULCER [None]
  - INTRAOCULAR PRESSURE INCREASED [None]
